FAERS Safety Report 5750750-X (Version None)
Quarter: 2008Q2

REPORT INFORMATION
  Report Type: 
  Country: None (occurrence: None)
  Receive Date: 20080523
  Receipt Date: 20080523
  Transmission Date: 20081010
  Serious: Yes (Life-Threatening, Hospitalization, Disabling)
  Sender: FDA-Public Use
  Company Number: None

PATIENT
  Age: 69 Year
  Sex: Male
  Weight: 89.3586 kg

DRUGS (2)
  1. LOVAZA [Suspect]
     Indication: BLOOD CHOLESTEROL
     Dosage: 2 X DAY
     Dates: start: 20080201
  2. LOVAZA [Suspect]
     Indication: BLOOD TRIGLYCERIDES ABNORMAL
     Dosage: 2 X DAY
     Dates: start: 20080201

REACTIONS (1)
  - DIZZINESS [None]
